FAERS Safety Report 4435313-0 (Version None)
Quarter: 2004Q3

REPORT INFORMATION
  Report Type: 
  Country: None (occurrence: None)
  Receive Date: 20040827
  Receipt Date: 20040827
  Transmission Date: 20050211
  Serious: Yes (Life-Threatening, Hospitalization)
  Sender: FDA-Public Use
  Company Number: None

PATIENT
  Age: 19 Year
  Sex: Male
  Weight: 71.4 kg

DRUGS (1)
  1. CYTARABINE [Suspect]
     Indication: ACUTE LEUKAEMIA
     Dosage: 5.5 GM BID IV
     Route: 042
     Dates: start: 20031208, end: 20031212

REACTIONS (13)
  - DIARRHOEA [None]
  - DYSPNOEA [None]
  - FUNGAL INFECTION [None]
  - LUNG NEOPLASM [None]
  - MYCOBACTERIAL INFECTION [None]
  - OXYGEN SATURATION DECREASED [None]
  - PLATELET COUNT DECREASED [None]
  - PRODUCTIVE COUGH [None]
  - SPUTUM CULTURE POSITIVE [None]
  - STREPTOCOCCAL BACTERAEMIA [None]
  - TACHYPNOEA [None]
  - VOMITING [None]
  - WHITE BLOOD CELL COUNT DECREASED [None]
